FAERS Safety Report 9665759 (Version 1)
Quarter: 2013Q4

REPORT INFORMATION
  Report Type: Spontaneous
  Country: US (occurrence: None)
  Receive Date: 20131031
  Receipt Date: 20131031
  Transmission Date: 20140711
  Serious: No
  Sender: FDA-Public Use
  Company Number: None

PATIENT
  Age: 25 Year
  Sex: Female
  Weight: 72.58 kg

DRUGS (1)
  1. CITALOPRAM [Suspect]
     Dosage: TAKEN BY MOUTH

REACTIONS (8)
  - Headache [None]
  - Sleep disorder [None]
  - Loss of consciousness [None]
  - Pruritus [None]
  - Scratch [None]
  - Haemorrhage [None]
  - Galactorrhoea [None]
  - Alcohol interaction [None]
